FAERS Safety Report 7477615-X (Version None)
Quarter: 2011Q2

REPORT INFORMATION
  Report Type: 
  Country: None (occurrence: None)
  Receive Date: 20110505
  Receipt Date: 20110422
  Transmission Date: 20111010
  Serious: Yes (Other)
  Sender: FDA-Public Use
  Company Number: 2011P1005526

PATIENT
  Age: 77 Year
  Sex: Female
  Weight: 56.6996 kg

DRUGS (7)
  1. UNSPECIFIED VITAMINS [Concomitant]
  2. CETIRIZINE HYDROCHLORIDE [Suspect]
     Indication: MULTIPLE ALLERGIES
     Dosage: 10 MG;HS;PO ; 5 MG;AM;PO ; 5 MG;NOON;PO ; 10 MG;HS;PO ; 0.5 DOSE
     Route: 048
     Dates: start: 20110201, end: 20110328
  3. CETIRIZINE HYDROCHLORIDE [Suspect]
     Indication: MULTIPLE ALLERGIES
     Dosage: 10 MG;HS;PO ; 5 MG;AM;PO ; 5 MG;NOON;PO ; 10 MG;HS;PO ; 0.5 DOSE
     Route: 048
     Dates: start: 20110329, end: 20110401
  4. CETIRIZINE HYDROCHLORIDE [Suspect]
     Indication: MULTIPLE ALLERGIES
     Dosage: 10 MG;HS;PO ; 5 MG;AM;PO ; 5 MG;NOON;PO ; 10 MG;HS;PO ; 0.5 DOSE
     Route: 048
     Dates: start: 20110408, end: 20110420
  5. CETIRIZINE HYDROCHLORIDE [Suspect]
     Indication: MULTIPLE ALLERGIES
     Dosage: 10 MG;HS;PO ; 5 MG;AM;PO ; 5 MG;NOON;PO ; 10 MG;HS;PO ; 0.5 DOSE
     Route: 048
     Dates: start: 20110329, end: 20110401
  6. CETIRIZINE HYDROCHLORIDE [Suspect]
     Indication: MULTIPLE ALLERGIES
     Dosage: 10 MG;HS;PO ; 5 MG;AM;PO ; 5 MG;NOON;PO ; 10 MG;HS;PO ; 0.5 DOSE
     Route: 048
     Dates: start: 20110329, end: 20110401
  7. FISH OIL [Concomitant]

REACTIONS (9)
  - OROPHARYNGEAL PAIN [None]
  - SINUS OPERATION [None]
  - DRUG HYPERSENSITIVITY [None]
  - THROAT TIGHTNESS [None]
  - DYSPNOEA [None]
  - DRY THROAT [None]
  - PRODUCT SUBSTITUTION ISSUE [None]
  - NASOPHARYNGITIS [None]
  - TONGUE DISORDER [None]
